FAERS Safety Report 8967413 (Version 3)
Quarter: 2014Q3

REPORT INFORMATION
  Report Type: Report from Study
  Country: FR (occurrence: FR)
  Receive Date: 20121217
  Receipt Date: 20140826
  Transmission Date: 20150326
  Serious: Yes (Death)
  Sender: FDA-Public Use
  Company Number: FR-BIOGENIDEC-2012BI058924

PATIENT
  Age: 48 Year
  Sex: Female

DRUGS (6)
  1. SKENAN [Concomitant]
     Active Substance: MORPHINE SULFATE
  2. IXPRIM [Concomitant]
     Active Substance: ACETAMINOPHEN\TRAMADOL HYDROCHLORIDE
  3. AVONEX [Suspect]
     Active Substance: INTERFERON BETA-1A
     Indication: MULTIPLE SCLEROSIS
     Route: 030
     Dates: start: 20120119
  4. NEURONTIN [Concomitant]
     Active Substance: GABAPENTIN
  5. AVONEX [Suspect]
     Active Substance: INTERFERON BETA-1A
     Indication: MULTIPLE SCLEROSIS
     Route: 030
     Dates: start: 20120105, end: 20120112
  6. CONCOMITANT TREATMENT NOS [Concomitant]

REACTIONS (2)
  - Influenza like illness [Unknown]
  - Anal squamous cell carcinoma [Fatal]

NARRATIVE: CASE EVENT DATE: 201101
